FAERS Safety Report 15757895 (Version 2)
Quarter: 2018Q4

REPORT INFORMATION
  Report Type: Spontaneous
  Country: NL (occurrence: NL)
  Receive Date: 20181225
  Receipt Date: 20181229
  Transmission Date: 20190205
  Serious: Yes (Other)
  Sender: FDA-Public Use
  Company Number: NL-AUROBINDO-AUR-APL-2018-062336

PATIENT
  Age: 9 Year
  Sex: Female

DRUGS (1)
  1. PREDNISONE. [Suspect]
     Active Substance: PREDNISONE
     Indication: SYSTEMIC SCLERODERMA
     Dosage: UNK
     Route: 065

REACTIONS (9)
  - Pain [Unknown]
  - Muscular weakness [Unknown]
  - Depressed mood [Unknown]
  - Writer^s cramp [Recovered/Resolved]
  - Product use in unapproved indication [Unknown]
  - Off label use [Unknown]
  - Arthritis [Unknown]
  - Cushingoid [Unknown]
  - Systemic scleroderma [Unknown]
